FAERS Safety Report 8956140 (Version 1)
Quarter: 2012Q4

REPORT INFORMATION
  Report Type: Report from Study
  Country: GB (occurrence: GB)
  Receive Date: 20121210
  Receipt Date: 20121210
  Transmission Date: 20130627
  Serious: Yes (Hospitalization)
  Sender: FDA-Public Use
  Company Number: GB-ASTRAZENECA-2012SE90439

PATIENT
  Age: 28403 Day
  Sex: Male
  Weight: 70.4 kg

DRUGS (9)
  1. VANDETANIB [Suspect]
     Indication: PANCREATIC CARCINOMA METASTATIC
     Route: 048
     Dates: start: 20121030
  2. GEMCITABINE [Suspect]
     Indication: PANCREATIC CARCINOMA METASTATIC
     Dosage: weekly at 1,000 mg/m2 as 30-minutes i.v. infusion for 3 consecutive weeks, followed by 1-week break
     Route: 042
     Dates: start: 20121030
  3. TRAMADOL HYDROCHLORIDE [Concomitant]
     Indication: PAIN
     Route: 048
     Dates: start: 20121029
  4. PARACETAMOL [Concomitant]
     Indication: PAIN
     Route: 048
     Dates: start: 20121029
  5. RANITIDINE [Concomitant]
     Indication: HYPERTENSION
     Route: 048
     Dates: start: 20120906
  6. ASPIRIN [Concomitant]
     Indication: MYOCARDIAL ISCHAEMIA
     Route: 048
     Dates: start: 20060906
  7. MOXONIDINE [Concomitant]
     Indication: HYPERTENSION
     Route: 048
     Dates: start: 20121028
  8. MOVICOL [Concomitant]
     Indication: CONSTIPATION
     Route: 048
     Dates: start: 20120525
  9. MORPHINE SULPHATE [Concomitant]
     Indication: PAIN
     Route: 048
     Dates: start: 20121029

REACTIONS (1)
  - Pleural effusion [Not Recovered/Not Resolved]
